FAERS Safety Report 22292734 (Version 2)
Quarter: 2023Q2

REPORT INFORMATION
  Report Type: Report from Study
  Country: CH (occurrence: CH)
  Receive Date: 20230508
  Receipt Date: 20230511
  Transmission Date: 20230722
  Serious: Yes (Death, Other)
  Sender: FDA-Public Use
  Company Number: CH-ABBVIE-4753387

PATIENT
  Age: 69 Year
  Sex: Female
  Weight: 55 kg

DRUGS (7)
  1. CARBIDOPA\LEVODOPA [Suspect]
     Active Substance: CARBIDOPA\LEVODOPA
     Indication: Parkinson^s disease
     Dosage: MD: 1.5 ML, CRD: 4.6 ML/H, ED: 4.3 ML
     Route: 050
     Dates: start: 20180929, end: 20230502
  2. CARBIDOPA\LEVODOPA [Suspect]
     Active Substance: CARBIDOPA\LEVODOPA
  3. Bisoprololi fumaras (2:1) (Bisoprolol) [Concomitant]
     Indication: Tachycardia
     Route: 048
  4. Lisinoprilum (ut Lisinoprilum dihydricum) (Lisinopril) [Concomitant]
     Indication: Hypertension
     Route: 048
  5. Zolpidemi tartras (Zolpidem) [Concomitant]
     Indication: Product used for unknown indication
     Route: 048
  6. DOMPERIDONE [Concomitant]
     Active Substance: DOMPERIDONE
     Indication: Parkinson^s disease
     Route: 048
  7. Amlodipinum ut Amlodipini besilas (Amlodipin) [Concomitant]
     Indication: Hypertension
     Route: 048

REACTIONS (21)
  - Multiple organ dysfunction syndrome [Fatal]
  - Atrial fibrillation [Unknown]
  - Hepatic failure [Fatal]
  - Dehydration [Not Recovered/Not Resolved]
  - Parkinson^s disease [Unknown]
  - Anaemia [Unknown]
  - Syncope [Unknown]
  - Bradykinesia [Unknown]
  - Deep vein thrombosis [Fatal]
  - Palliative care [Unknown]
  - Urinary tract infection [Unknown]
  - Hepatic enzyme increased [Unknown]
  - Hypochromic anaemia [Unknown]
  - Sinus node dysfunction [Unknown]
  - On and off phenomenon [Unknown]
  - Hypokalaemia [Unknown]
  - Cardiac pacemaker insertion [Unknown]
  - Renal failure [Fatal]
  - Abdominal pain [Unknown]
  - Orthostatic hypotension [Unknown]
  - Vomiting [Unknown]

NARRATIVE: CASE EVENT DATE: 20230101
